FAERS Safety Report 6544354-9 (Version None)
Quarter: 2010Q1

REPORT INFORMATION
  Report Type: 
  Country: None (occurrence: None)
  Receive Date: 20100120
  Receipt Date: 20100120
  Transmission Date: 20100710
  Serious: Yes (Other)
  Sender: FDA-Public Use
  Company Number: None

PATIENT
  Age: 38 Year
  Sex: Female
  Weight: 56.6996 kg

DRUGS (2)
  1. NASONEX [Suspect]
     Indication: EAR INFECTION
     Dates: start: 20100117, end: 20100120
  2. NASONEX [Suspect]
     Indication: SINUS CONGESTION
     Dates: start: 20100117, end: 20100120

REACTIONS (2)
  - MIGRAINE [None]
  - NAUSEA [None]
